FAERS Safety Report 9837166 (Version 1)
Quarter: 2013Q4

REPORT INFORMATION
  Report Type: Spontaneous
  Country: US (occurrence: None)
  Receive Date: 20131121
  Receipt Date: 20131121
  Transmission Date: 20140711
  Serious: No
  Sender: FDA-Public Use
  Company Number: 1000048948

PATIENT
  Sex: 0

DRUGS (2)
  1. TUDORZA PRESSAIR (ACLIDINIUM BROMIDE) (400 MICROGRAM, POWDER) [Suspect]
     Indication: CHRONIC OBSTRUCTIVE PULMONARY DISEASE
     Dosage: 800 MCG (400 MCG, 2 IN 1 D) , RESPIRATORY (INHALATION)?
     Route: 055
     Dates: start: 201308
  2. ADVAIR (SERETIDE) (INHALANT) [Suspect]
     Dosage: (1 IN 1 D)
     Route: 055

REACTIONS (2)
  - Dysphonia [None]
  - Aphonia [None]
